FAERS Safety Report 11179739 (Version 2)
Quarter: 2015Q2

REPORT INFORMATION
  Report Type: Spontaneous
  Country: GB (occurrence: GB)
  Receive Date: 20150611
  Receipt Date: 20150612
  Transmission Date: 20150821
  Serious: Yes (Hospitalization)
  Sender: FDA-Public Use
  Company Number: GB-TEVA-567455ACC

PATIENT
  Age: 78 Year
  Sex: Male
  Weight: 63.7 kg

DRUGS (11)
  1. ISOSORBIDE MONONITRATE. [Suspect]
     Active Substance: ISOSORBIDE MONONITRATE
     Indication: PROPHYLAXIS
     Dosage: 90 MILLIGRAM DAILY; 90 MG, QD; MOST RECENT DOSE: 29-APR-2015
     Route: 065
     Dates: start: 20110315
  2. TAMSULOSIN [Suspect]
     Active Substance: TAMSULOSIN
     Indication: URINARY RETENTION
     Dosage: 400 MILLIGRAM DAILY; 400 MG, QD; MOST RECENT DOSE: 29-APR-2015
     Route: 065
     Dates: start: 20150202
  3. RIVAROXABAN [Concomitant]
     Active Substance: RIVAROXABAN
     Indication: ATRIAL FIBRILLATION
     Dosage: 20 MILLIGRAM DAILY; 20 MG, QD
     Route: 065
     Dates: start: 20141202
  4. ACZ885 [Suspect]
     Active Substance: CANAKINUMAB
     Indication: CARDIOVASCULAR EVENT PROPHYLAXIS
     Dosage: CODE NOT BROKEN; MOST RECENT DOSE: 16-DEC-2014
     Route: 058
     Dates: start: 20130102
  5. PLACEBO [Suspect]
     Active Substance: UNSPECIFIED INGREDIENT
     Dates: start: 20130102
  6. BISOPROLOL [Suspect]
     Active Substance: BISOPROLOL
     Indication: HYPERTENSION
     Dosage: 5 MILLIGRAM DAILY; 5 MG, QD; MOST RECENT DOSE: 29-APR-2015
     Route: 065
     Dates: start: 20111006
  7. SPIRONOLACTONE. [Suspect]
     Active Substance: SPIRONOLACTONE
     Indication: OEDEMA
     Dosage: 25 MILLIGRAM DAILY; 25 MG, QD; MOST RECENT DOSE: 29-APR-2015
     Route: 065
     Dates: start: 20150325
  8. INDORAMIN [Suspect]
     Active Substance: INDORAMIN
     Indication: PROPHYLAXIS
     Dosage: 20 MILLIGRAM DAILY; 20 MG, QD; MOST RECENT DOSE: 29-APR-2015
     Route: 065
     Dates: start: 19971112
  9. BUMETANIDE. [Suspect]
     Active Substance: BUMETANIDE
     Indication: OEDEMA
     Dosage: 1 MILLIGRAM DAILY; 1 MG, QD; MOST RECENT DOSE: 29-APR-2015
     Route: 065
     Dates: start: 20150323
  10. FINASTERIDE. [Suspect]
     Active Substance: FINASTERIDE
     Indication: BENIGN PROSTATIC HYPERPLASIA
     Dosage: 1 MILLIGRAM DAILY; 1 MG, QD; MOST RECENT DOSE: 29-APR-2015
     Route: 065
     Dates: start: 20010806
  11. ATORVASTATIN [Concomitant]
     Active Substance: ATORVASTATIN
     Indication: HYPERCHOLESTEROLAEMIA
     Dosage: 80 MILLIGRAM DAILY; 80 MG, QD
     Route: 065
     Dates: start: 20111209

REACTIONS (2)
  - Fall [Recovered/Resolved]
  - Laceration [Recovered/Resolved]

NARRATIVE: CASE EVENT DATE: 20150429
